FAERS Safety Report 10069051 (Version 3)
Quarter: 2014Q2

REPORT INFORMATION
  Report Type: Spontaneous
  Country: IT (occurrence: IT)
  Receive Date: 20140409
  Receipt Date: 20140519
  Transmission Date: 20141212
  Serious: Yes (Hospitalization, Other)
  Sender: FDA-Public Use
  Company Number: IT-ACTAVIS-2014-06865

PATIENT
  Age: 66 Year
  Sex: Male

DRUGS (3)
  1. IRINOTECAN (UNKNOWN) [Suspect]
     Indication: RECTAL CANCER STAGE IV
     Dosage: 120 MG/M2, CYCLICAL
     Route: 042
     Dates: start: 20131202, end: 20140317
  2. OXALIPLATIN (UNKNOWN) [Suspect]
     Indication: COLON CANCER
     Dosage: UNK
     Route: 042
     Dates: start: 20131202, end: 20140303
  3. ERBITUX [Suspect]
     Indication: COLON CANCER
     Dosage: 250 MG/M2, CYCLICAL
     Route: 042
     Dates: start: 20131202, end: 20140324

REACTIONS (4)
  - Atrial fibrillation [Recovered/Resolved]
  - Palpitations [Recovered/Resolved]
  - Chills [Recovered/Resolved]
  - Hyperpyrexia [Recovered/Resolved]
